FAERS Safety Report 18243385 (Version 2)
Quarter: 2022Q3

REPORT INFORMATION
  Report Type: Spontaneous
  Country: FR (occurrence: FR)
  Receive Date: 20200908
  Receipt Date: 20220713
  Transmission Date: 20221026
  Serious: Yes (Life-Threatening)
  Sender: FDA-Public Use
  Company Number: FR-GSKCCFEMEA-CASE-01013124_AE-32946

PATIENT

DRUGS (6)
  1. FLUTICASONE FUROATE\VILANTEROL TRIFENATATE [Suspect]
     Active Substance: FLUTICASONE FUROATE\VILANTEROL TRIFENATATE
     Indication: Asthma
     Dosage: 92 ?G, QD
     Dates: start: 20200528, end: 20200728
  2. ALBUTEROL [Suspect]
     Active Substance: ALBUTEROL
     Indication: Product used for unknown indication
     Dosage: 100 UG
     Dates: start: 201910
  3. SYMBICORT [Suspect]
     Active Substance: BUDESONIDE\FORMOTEROL FUMARATE DIHYDRATE
     Indication: Asthma
     Dosage: UNK, (200/6 ?G)
     Dates: start: 201910, end: 202005
  4. BILASTINE [Concomitant]
     Active Substance: BILASTINE
     Indication: Antiallergic therapy
     Dosage: 20 MG, QD
     Dates: start: 2018
  5. BILASTINE [Concomitant]
     Active Substance: BILASTINE
     Indication: Eczema
  6. BILASTINE [Concomitant]
     Active Substance: BILASTINE
     Indication: Dyspnoea

REACTIONS (5)
  - Dizziness [Recovered/Resolved]
  - Nausea [Unknown]
  - Headache [Recovered/Resolved]
  - Therapy interrupted [Recovered/Resolved]
  - Chest pain [Recovered/Resolved]
